FAERS Safety Report 9455689 (Version 1)
Quarter: 2013Q3

REPORT INFORMATION
  Report Type: Spontaneous
  Country: AU (occurrence: AU)
  Receive Date: 20130813
  Receipt Date: 20130813
  Transmission Date: 20140515
  Serious: Yes (Other)
  Sender: FDA-Public Use
  Company Number: AU-PFIZER INC-2013233447

PATIENT
  Age: 41 Year
  Sex: 0

DRUGS (4)
  1. TAZOCIN EF [Suspect]
     Dosage: 18 G DAILY
     Dates: start: 20120613, end: 20120614
  2. VANCOMYCIN HYDROCHLORIDE [Suspect]
     Dosage: UNK
     Dates: start: 20120613, end: 20120614
  3. FLUCLOXACILLIN SODIUM [Suspect]
     Dosage: 8 G DAILY
     Route: 042
     Dates: start: 20120607, end: 20120613
  4. NAPROXEN [Suspect]
     Dosage: 750 MG DAILY
     Dates: start: 20120611, end: 20120614

REACTIONS (2)
  - Tubulointerstitial nephritis [Not Recovered/Not Resolved]
  - Eosinophilia [Not Recovered/Not Resolved]
